FAERS Safety Report 9550723 (Version 1)
Quarter: 2013Q3

REPORT INFORMATION
  Report Type: Spontaneous
  Country: US (occurrence: US)
  Receive Date: 20130924
  Receipt Date: 20130924
  Transmission Date: 20140515
  Serious: No
  Sender: FDA-Public Use
  Company Number: US-SANOFI-AVENTIS-2013SA020626

PATIENT
  Age: 43 Year
  Sex: Female

DRUGS (11)
  1. AUBAGIO [Suspect]
     Indication: MULTIPLE SCLEROSIS
     Route: 048
     Dates: start: 201302, end: 20130724
  2. CYMBALTA [Concomitant]
  3. HYDROCODONE [Concomitant]
  4. PROVIGIL [Concomitant]
  5. AMITRIPTYLINE [Concomitant]
  6. VERAPAMIL - SLOW RELEASE [Concomitant]
  7. MELOXICAM [Concomitant]
  8. VITAMIN B12 [Concomitant]
  9. HYDRALAZINE [Concomitant]
  10. LISINOPRIL [Concomitant]
  11. SOMA [Concomitant]

REACTIONS (4)
  - Anxiety [Recovering/Resolving]
  - Nodule [Not Recovered/Not Resolved]
  - Alopecia [Not Recovered/Not Resolved]
  - Drug dose omission [Unknown]
